FAERS Safety Report 5636066-0 (Version None)
Quarter: 2008Q1

REPORT INFORMATION
  Report Type: 
  Country: None (occurrence: None)
  Receive Date: 20080220
  Receipt Date: 20080220
  Transmission Date: 20080703
  Serious: Yes (Other)
  Sender: FDA-Public Use
  Company Number: None

PATIENT
  Sex: Male
  Weight: 68.0396 kg

DRUGS (3)
  1. RESTORIL [Suspect]
     Indication: ANXIETY
     Dosage: 2 DOSES GIVEN ONE NIGHT
     Dates: start: 20071112, end: 20071112
  2. RESTORIL [Suspect]
     Indication: INSOMNIA
     Dosage: 2 DOSES GIVEN ONE NIGHT
     Dates: start: 20071112, end: 20071112
  3. RESTORIL [Suspect]
     Indication: RESTLESSNESS
     Dosage: 2 DOSES GIVEN ONE NIGHT
     Dates: start: 20071112, end: 20071112

REACTIONS (6)
  - ANXIETY [None]
  - DRUG INEFFECTIVE [None]
  - INCORRECT DOSE ADMINISTERED [None]
  - RESTLESSNESS [None]
  - SOMNOLENCE [None]
  - UNRESPONSIVE TO STIMULI [None]
